FAERS Safety Report 6605126-X (Version None)
Quarter: 2010Q1

REPORT INFORMATION
  Report Type: 
  Country: None (occurrence: None)
  Receive Date: 20100226
  Receipt Date: 20100218
  Transmission Date: 20100710
  Serious: Yes (Death, Life-Threatening, Other)
  Sender: FDA-Public Use
  Company Number: JP-ASTRAZENECA-2010SE04942

PATIENT
  Age: 80 Year
  Sex: Female

DRUGS (3)
  1. MEROPENEM [Suspect]
     Indication: PNEUMONIA
     Route: 042
     Dates: start: 20100122, end: 20100127
  2. BISOLVON [Concomitant]
     Indication: SPUTUM RETENTION
     Dates: start: 20091225, end: 20100131
  3. PENTCILLIN [Concomitant]
     Indication: PNEUMONIA
     Dates: start: 20091225, end: 20091227

REACTIONS (9)
  - BLOOD CHLORIDE INCREASED [None]
  - BLOOD SODIUM INCREASED [None]
  - BLOOD UREA INCREASED [None]
  - CONDITION AGGRAVATED [None]
  - HEPATIC FUNCTION ABNORMAL [None]
  - PLATELET COUNT DECREASED [None]
  - PNEUMONIA [None]
  - RENAL IMPAIRMENT [None]
  - RESPIRATORY FAILURE [None]
